FAERS Safety Report 9283001 (Version 3)
Quarter: 2015Q2

REPORT INFORMATION
  Report Type: Spontaneous
  Country: US (occurrence: US)
  Receive Date: 20130510
  Receipt Date: 20150520
  Transmission Date: 20150821
  Serious: Yes (Hospitalization)
  Sender: FDA-Public Use
  Company Number: US-BAYER-2013-057315

PATIENT
  Age: 35 Year
  Sex: Female

DRUGS (34)
  1. KLONOPIN [Concomitant]
     Active Substance: CLONAZEPAM
     Indication: ANXIETY
     Dosage: 0.5 MG, EVERYDAY
     Route: 048
     Dates: start: 20120430
  2. PRILOSEC [Concomitant]
     Active Substance: OMEPRAZOLE MAGNESIUM
     Indication: GASTROOESOPHAGEAL REFLUX DISEASE
     Dosage: 20 MG, EVERY DAY
     Route: 048
     Dates: start: 20111208
  3. VENTOLIN ESPETTORANTE [Concomitant]
     Indication: ASTHMA
     Dosage: UNK
     Dates: start: 201003
  4. PEPCID [CALCIUM CARBONATE,FAMOTIDINE,MAGNESIUM HYDROXIDE] [Concomitant]
     Indication: GASTROOESOPHAGEAL REFLUX DISEASE
     Dosage: UNK
     Dates: start: 201106
  5. OCELLA [Suspect]
     Active Substance: DROSPIRENONE\ETHINYL ESTRADIOL
     Indication: ACNE
  6. OCELLA [Suspect]
     Active Substance: DROSPIRENONE\ETHINYL ESTRADIOL
     Indication: PREMENSTRUAL SYNDROME
  7. YAZ [Suspect]
     Active Substance: DROSPIRENONE\ETHINYL ESTRADIOL
     Indication: ACNE
  8. MULTIVITAMIN [Concomitant]
     Active Substance: VITAMINS
     Dosage: ONE TABLET DAILY
     Route: 048
     Dates: start: 20091128, end: 20120614
  9. ALBUTEROL. [Concomitant]
     Active Substance: ALBUTEROL
     Indication: WHEEZING
     Dosage: 2 PUFFS 4 TIMES A DAY AS NEEDED
     Route: 045
     Dates: start: 20111208
  10. ABILIFY [Concomitant]
     Active Substance: ARIPIPRAZOLE
     Dosage: 10 MG, IN THE MORNING
     Route: 048
     Dates: start: 20120113, end: 20121116
  11. FAMOTIDINE. [Concomitant]
     Active Substance: FAMOTIDINE
     Indication: ABDOMINAL DISCOMFORT
     Dosage: 40 MG, DAILY
     Route: 048
     Dates: start: 20120430
  12. VENTOLIN ESPETTORANTE [Concomitant]
     Indication: HYPERSENSITIVITY
  13. EFFEXOR [Concomitant]
     Active Substance: VENLAFAXINE HYDROCHLORIDE
     Dosage: 75 PLUS 150 MG DAILY
     Route: 048
     Dates: start: 20120430
  14. EFFEXOR [Concomitant]
     Active Substance: VENLAFAXINE HYDROCHLORIDE
     Dosage: 75 PLUS 150 MG DAILY
     Route: 048
     Dates: start: 20120529
  15. LAMICTAL [Concomitant]
     Active Substance: LAMOTRIGINE
     Dosage: 150 MG, BID
     Route: 048
     Dates: start: 20111208
  16. LAMICTAL [Concomitant]
     Active Substance: LAMOTRIGINE
     Dosage: 150 MG, BID
     Route: 048
     Dates: start: 20120529
  17. SINGULAIR [Concomitant]
     Active Substance: MONTELUKAST SODIUM
     Indication: ASTHMA
     Dosage: 10 MG, DAILY
     Route: 048
     Dates: start: 20120430
  18. SINGULAIR [Concomitant]
     Active Substance: MONTELUKAST SODIUM
     Indication: ASTHMA
     Dosage: UNK
     Dates: start: 201003
  19. PRILOSEC [Concomitant]
     Active Substance: OMEPRAZOLE MAGNESIUM
     Indication: GASTROOESOPHAGEAL REFLUX DISEASE
     Dosage: UNK
     Dates: start: 201106
  20. AMOXICILLIN. [Concomitant]
     Active Substance: AMOXICILLIN
     Dosage: 500 MG, 2 CAPS TWICE A DAY FOR 7 DAYS
     Route: 048
     Dates: start: 20120319
  21. SINGULAIR [Concomitant]
     Active Substance: MONTELUKAST SODIUM
     Indication: ASTHMA
     Dosage: 10 MG DAILY
     Route: 048
     Dates: start: 20111208
  22. SINGULAIR [Concomitant]
     Active Substance: MONTELUKAST SODIUM
     Indication: HYPERSENSITIVITY
  23. PRILOSEC [Concomitant]
     Active Substance: OMEPRAZOLE MAGNESIUM
     Indication: GASTROOESOPHAGEAL REFLUX DISEASE
     Dosage: 20 MG, EVERY DAY
     Route: 048
     Dates: start: 20120529
  24. OCELLA [Suspect]
     Active Substance: DROSPIRENONE\ETHINYL ESTRADIOL
     Indication: CONTRACEPTION
     Dosage: UNK
     Dates: start: 2010, end: 201205
  25. EFFEXOR [Concomitant]
     Active Substance: VENLAFAXINE HYDROCHLORIDE
     Dosage: 75 PLUS 150 MG DAILY
     Route: 048
     Dates: start: 20111208
  26. KLONOPIN [Concomitant]
     Active Substance: CLONAZEPAM
     Indication: ANXIETY
     Dosage: 0.5 MG, EVERYDAY
     Route: 048
     Dates: start: 20111208
  27. DOCUSATE [Concomitant]
     Active Substance: DOCUSATE
     Dosage: 100 MG 1 TO 2 TIMES A DAY AS NEEDED
     Route: 048
     Dates: start: 20100415, end: 20121109
  28. SINGULAIR [Concomitant]
     Active Substance: MONTELUKAST SODIUM
     Indication: ASTHMA
     Dosage: 10 MG, DAILY
     Route: 048
     Dates: start: 20120628
  29. PRILOSEC [Concomitant]
     Active Substance: OMEPRAZOLE MAGNESIUM
     Indication: GASTROOESOPHAGEAL REFLUX DISEASE
     Dosage: 20 MG, EVERY DAY
     Route: 048
     Dates: start: 20120430
  30. YAZ [Suspect]
     Active Substance: DROSPIRENONE\ETHINYL ESTRADIOL
     Indication: CONTRACEPTION
     Dosage: UNK
     Dates: start: 2009, end: 2010
  31. YAZ [Suspect]
     Active Substance: DROSPIRENONE\ETHINYL ESTRADIOL
     Indication: PREMENSTRUAL SYNDROME
  32. KLONOPIN [Concomitant]
     Active Substance: CLONAZEPAM
     Indication: ANXIETY
     Dosage: 0.5 MG, EVERYDAY
     Route: 048
     Dates: start: 20120529
  33. ALBUTEROL. [Concomitant]
     Active Substance: ALBUTEROL
     Indication: WHEEZING
     Dosage: 2 PUFFS 4 TIMES A DAY AS NEEDED
     Route: 045
     Dates: start: 20120430
  34. LAMICTAL [Concomitant]
     Active Substance: LAMOTRIGINE
     Dosage: 150 MG, BID
     Route: 048
     Dates: start: 20120430

REACTIONS (13)
  - Pain [None]
  - Migraine [None]
  - VIIth nerve paralysis [None]
  - Cerebrovascular accident [None]
  - Abdominal pain [None]
  - Vision blurred [None]
  - Hemiparesis [None]
  - Anxiety [Not Recovered/Not Resolved]
  - Speech disorder [None]
  - Depression [Not Recovered/Not Resolved]
  - General physical health deterioration [None]
  - Emotional distress [None]
  - Injury [None]

NARRATIVE: CASE EVENT DATE: 2009
